FAERS Safety Report 16069184 (Version 1)
Quarter: 2019Q1

REPORT INFORMATION
  Report Type: Spontaneous
  Country: DK (occurrence: DK)
  Receive Date: 20190313
  Receipt Date: 20190313
  Transmission Date: 20190418
  Serious: Yes (Other)
  Sender: FDA-Public Use
  Company Number: DK-BAXTER-2019BAX004639

PATIENT
  Age: 34 Year
  Sex: Female

DRUGS (3)
  1. SENDOXAN [Suspect]
     Active Substance: CYCLOPHOSPHAMIDE
     Indication: BREAST CANCER
     Dosage: POTENCY: 1,000 MG PER VIAL; RECEIVED FOUR SERIES OF CYCLOPHOSPHAMIDE ON 27JUL, 17AUG, 07SEP, AND 28S
     Route: 065
     Dates: start: 20120727, end: 20120928
  2. TAXOTERE [Suspect]
     Active Substance: DOCETAXEL
     Indication: BREAST CANCER
     Dosage: DOSE: 135 MG (80% DOSE), POTENCY: UNKNOWN. RECEIVED FOUR SERIES OF TAXOTERE 135MG (80% DOSE).
     Route: 065
     Dates: start: 20121022, end: 20121228
  3. EPIRUBICIN HOSPIRA [Suspect]
     Active Substance: EPIRUBICIN HYDROCHLORIDE
     Indication: BREAST CANCER
     Dosage: DOSE: 151 MG, POTENCY: 2 MG/ML; RECEIVED FOUR SERIES OF EPIRUBICIN ON 27JUL, 17AUG, 07SEP, AND 28SEP
     Route: 065
     Dates: start: 20120727, end: 20120928

REACTIONS (6)
  - Neutropenia [Unknown]
  - Cognitive disorder [Unknown]
  - Pyrexia [Unknown]
  - Nausea [Unknown]
  - Visual impairment [Unknown]
  - Fatigue [Unknown]
